FAERS Safety Report 14907301 (Version 1)
Quarter: 2018Q2

REPORT INFORMATION
  Report Type: Report from Study
  Country: None (occurrence: BE)
  Receive Date: 20180517
  Receipt Date: 20180517
  Transmission Date: 20180711
  Serious: Yes (Hospitalization)
  Sender: FDA-Public Use
  Company Number: BE-ABBVIE-18K-013-2357517-00

PATIENT
  Sex: Female

DRUGS (5)
  1. DUODOPA [Suspect]
     Active Substance: CARBIDOPA\LEVODOPA
     Dosage: MD=7ML??CD=4ML/HR DURING 16HRS ??ED=3ML
     Route: 050
     Dates: start: 20180319, end: 20180515
  2. DUODOPA [Suspect]
     Active Substance: CARBIDOPA\LEVODOPA
     Indication: PARKINSON^S DISEASE
     Dosage: MD=5ML??CD=3.2ML/HR DURING 16HRS ??ED=2.5ML
     Route: 050
     Dates: start: 20171024, end: 20171110
  3. DUODOPA [Suspect]
     Active Substance: CARBIDOPA\LEVODOPA
     Dosage: MD=7ML??CD=4ML/HR DURING 16HRS ??ED=3.5ML
     Route: 050
     Dates: start: 20180515
  4. DUODOPA [Suspect]
     Active Substance: CARBIDOPA\LEVODOPA
     Dosage: DOSES CONTINUOUSLY MONITORED AND ADAPTED
     Route: 050
     Dates: start: 20171110, end: 20180319
  5. DAKAR [Concomitant]
     Indication: PRODUCT USED FOR UNKNOWN INDICATION

REACTIONS (2)
  - Pneumonia aspiration [Unknown]
  - Pneumonia [Unknown]
